FAERS Safety Report 6638557-2 (Version None)
Quarter: 2010Q1

REPORT INFORMATION
  Report Type: 
  Country: None (occurrence: None)
  Receive Date: 20100317
  Receipt Date: 20100316
  Transmission Date: 20100710
  Serious: Yes (Hospitalization, Disabling)
  Sender: FDA-Public Use
  Company Number: DE-SANOFI-AVENTIS-2010SA011598

PATIENT
  Age: 62 Year
  Sex: Female
  Weight: 56 kg

DRUGS (7)
  1. LANTUS [Suspect]
     Route: 058
     Dates: start: 20040503
  2. HYDROCHLOROTHIAZIDE/OLMESARTAN MEDOXOMIL [Concomitant]
     Route: 048
     Dates: start: 20070522
  3. ACETYLSALICYLIC ACID SRT [Concomitant]
     Indication: CORONARY ARTERY DISEASE
     Route: 048
     Dates: start: 20071010, end: 20091223
  4. SIMVASTATIN [Concomitant]
     Route: 048
     Dates: start: 20040116
  5. NOVORAPID [Concomitant]
     Dosage: 5-6-6 IU DAILY
     Route: 058
     Dates: start: 20021001
  6. ORTHOMOL [Concomitant]
     Indication: DRUG USE FOR UNKNOWN INDICATION
     Route: 031
  7. TRUSOPT [Concomitant]
     Indication: DRUG USE FOR UNKNOWN INDICATION
     Route: 031
     Dates: start: 20070410

REACTIONS (1)
  - ADENOCARCINOMA PANCREAS [None]
